FAERS Safety Report 16574020 (Version 3)
Quarter: 2019Q3

REPORT INFORMATION
  Report Type: Spontaneous
  Country: FR (occurrence: FR)
  Receive Date: 20190715
  Receipt Date: 20190920
  Transmission Date: 20191004
  Serious: No
  Sender: FDA-Public Use
  Company Number: FR-SHIRE-FR201922186

PATIENT

DRUGS (1)
  1. HYQVIA [Suspect]
     Active Substance: HUMAN IMMUNOGLOBULIN G\HYALURONIDASE RECOMBINANT HUMAN
     Indication: IMMUNODEFICIENCY COMMON VARIABLE
     Dosage: 37.5 GRAM, UNKNOWN
     Route: 058
     Dates: start: 20180430

REACTIONS (5)
  - Injection site pruritus [Recovered/Resolved]
  - Injection site swelling [Unknown]
  - Injection site erythema [Recovered/Resolved]
  - Infusion related reaction [Unknown]
  - Injection site paraesthesia [Recovered/Resolved]
